FAERS Safety Report 6795617-3 (Version None)
Quarter: 2010Q2

REPORT INFORMATION
  Report Type: 
  Country: None (occurrence: None)
  Receive Date: 20100625
  Receipt Date: 20100614
  Transmission Date: 20101027
  Serious: Yes (Other)
  Sender: FDA-Public Use
  Company Number: DE-JNJFOC-20100605787

PATIENT
  Age: 20 Year
  Sex: Female

DRUGS (4)
  1. REMICADE [Suspect]
     Indication: JUVENILE ARTHRITIS
     Dosage: FOR 4 MONTHS
     Route: 042
  2. ETANERCEPT [Suspect]
     Indication: JUVENILE ARTHRITIS
  3. ADALIMUMAB [Suspect]
     Indication: JUVENILE ARTHRITIS
  4. METHOTREXATE [Concomitant]
     Indication: JUVENILE ARTHRITIS

REACTIONS (1)
  - CERVICAL DYSPLASIA [None]
